FAERS Safety Report 17486586 (Version 1)
Quarter: 2020Q1

REPORT INFORMATION
  Report Type: Report from Study
  Country: US (occurrence: US)
  Receive Date: 20200303
  Receipt Date: 20200303
  Transmission Date: 20200409
  Serious: Yes (Life-Threatening, Hospitalization)
  Sender: FDA-Public Use
  Company Number: US-ROCHE-2559251

PATIENT
  Age: 58 Year
  Sex: Male

DRUGS (5)
  1. ATEZOLIZUMAB. [Suspect]
     Active Substance: ATEZOLIZUMAB
     Indication: COLORECTAL CANCER METASTATIC
     Dosage: 60 MINUTES ON DAY 1,?ON 23/DEC/2019, HE RECEIVED LAST DOSE OF ATEZOLIZUMAB.
     Route: 042
     Dates: start: 20190930
  2. LEUCOVORIN CALCIUM. [Suspect]
     Active Substance: LEUCOVORIN CALCIUM
     Indication: COLORECTAL CANCER METASTATIC
     Dosage: 2 HOURS ON DAY 1?ON 23/DEC/2019, HE RECEIVED LAST DOSE (800 MG) OF LEUCOVORIN CALCIUM.
     Route: 042
     Dates: start: 20190930
  3. BEVACIZUMAB. [Suspect]
     Active Substance: BEVACIZUMAB
     Indication: COLORECTAL CANCER METASTATIC
     Dosage: OVER 90 MINUTES ON DAY 1?ON 23/DEC/2019, HE RECEIVED LAST DOSE (400 MG) OF BEVACIZUMAB.
     Route: 042
     Dates: start: 20190930
  4. OXALIPLATIN. [Suspect]
     Active Substance: OXALIPLATIN
     Indication: COLORECTAL CANCER METASTATIC
     Dosage: OVER 2 HOURS ON DAY 1?ON 23/DEC/2019, HE RECEIVED LAST DOSE (165 MG) OF OXALIPLATIN.
     Route: 042
     Dates: start: 20190930
  5. FLUOROURACIL. [Suspect]
     Active Substance: FLUOROURACIL
     Indication: COLORECTAL CANCER METASTATIC
     Dosage: OVER 2 TO 4 MINUTES ON DAY 1, FOLLOWED BY 2400 MG/M2 CONTINUOUS INFUSION OVER 46 TO 48 HOURS STARTIN
     Route: 042
     Dates: start: 20190930

REACTIONS (1)
  - Soft tissue necrosis [Not Recovered/Not Resolved]

NARRATIVE: CASE EVENT DATE: 20200114
